FAERS Safety Report 8264051-1 (Version None)
Quarter: 2012Q2

REPORT INFORMATION
  Report Type: 
  Country: None (occurrence: None)
  Receive Date: 20120406
  Receipt Date: 20120327
  Transmission Date: 20120825
  Serious: No
  Sender: FDA-Public Use
  Company Number: US-BIOGENIDEC-2012BI010910

PATIENT
  Age: 53 Year
  Sex: Male

DRUGS (1)
  1. TYSABRI [Suspect]
     Indication: MULTIPLE SCLEROSIS
     Route: 042
     Dates: start: 20120214

REACTIONS (6)
  - ADVERSE REACTION [None]
  - INSOMNIA [None]
  - PRURITUS [None]
  - RASH [None]
  - HYPERSENSITIVITY [None]
  - PAIN IN EXTREMITY [None]
